FAERS Safety Report 7083121-7 (Version None)
Quarter: 2010Q4

REPORT INFORMATION
  Report Type: 
  Country: None (occurrence: None)
  Receive Date: 20101104
  Receipt Date: 20101022
  Transmission Date: 20110411
  Serious: Yes (Other)
  Sender: FDA-Public Use
  Company Number: NO-BAYER-201043249GPV

PATIENT
  Age: 46 Year
  Sex: Female

DRUGS (1)
  1. MIRENA [Suspect]
     Indication: METRORRHAGIA
     Route: 015
     Dates: start: 20100604

REACTIONS (1)
  - CEREBROVASCULAR ACCIDENT [None]
